FAERS Safety Report 5819204-6 (Version None)
Quarter: 2008Q3

REPORT INFORMATION
  Report Type: 
  Country: None (occurrence: None)
  Receive Date: 20080723
  Receipt Date: 20080709
  Transmission Date: 20090109
  Serious: Yes (Other)
  Sender: FDA-Public Use
  Company Number: GB-GENENTECH-264367

PATIENT
  Age: 64 Year
  Sex: Female

DRUGS (3)
  1. MABTHERA [Suspect]
     Indication: RHEUMATOID ARTHRITIS
     Dosage: 1 G, UNK
     Route: 042
  2. ACETAMINOPHEN [Concomitant]
     Indication: PAIN
  3. TRAMADOL HCL [Concomitant]

REACTIONS (1)
  - BREAST CANCER [None]
